FAERS Safety Report 14266988 (Version 1)
Quarter: 2017Q4

REPORT INFORMATION
  Report Type: Spontaneous
  Country: CN (occurrence: CN)
  Receive Date: 20171211
  Receipt Date: 20171211
  Transmission Date: 20180321
  Serious: Yes (Life-Threatening)
  Sender: FDA-Public Use
  Company Number: CN-009507513-1712CHN001366

PATIENT
  Age: 52 Year
  Sex: Female
  Weight: 60 kg

DRUGS (3)
  1. TIENAM [Suspect]
     Active Substance: CILASTATIN SODIUM\IMIPENEM
     Indication: INFECTION
     Dosage: 1 DF, TID
     Route: 041
     Dates: start: 20170924, end: 20170924
  2. TARGOCID [Suspect]
     Active Substance: TEICOPLANIN
     Indication: INFECTION
     Dosage: 0.4 (UNITS UNKNOWN), QD
     Route: 041
     Dates: start: 20170924
  3. ULINASTATIN [Suspect]
     Active Substance: ULINASTATIN
     Indication: SEPSIS
     Dosage: 1 DF, QD
     Route: 041
     Dates: start: 20170923

REACTIONS (4)
  - Respiratory failure [Recovered/Resolved]
  - Cardiac arrest [Recovered/Resolved]
  - Muscle twitching [Recovered/Resolved]
  - Loss of consciousness [Recovered/Resolved]

NARRATIVE: CASE EVENT DATE: 20170924
